FAERS Safety Report 5030588-1 (Version None)
Quarter: 2006Q2

REPORT INFORMATION
  Report Type: 
  Country: None (occurrence: None)
  Receive Date: 20060615
  Receipt Date: 20060606
  Transmission Date: 20061013
  Serious: Yes (Hospitalization, Other)
  Sender: FDA-Public Use
  Company Number: 2006057075

PATIENT
  Age: 63 Year
  Sex: Female
  Weight: 90.2658 kg

DRUGS (6)
  1. CELEBREX [Suspect]
     Indication: ARTHRITIS
     Dosage: 400 MG (200 MG 2 IN 1 D)
     Dates: start: 19990101
  2. IBUPROFEN [Concomitant]
  3. NAPROXEN [Concomitant]
  4. DARVOCET [Concomitant]
  5. VIOXX [Concomitant]
  6. DICLOFENAC SODIUM [Concomitant]

REACTIONS (4)
  - CAROTID ARTERY STENOSIS [None]
  - CEREBROVASCULAR ACCIDENT [None]
  - MYOCARDIAL INFARCTION [None]
  - STENT PLACEMENT [None]
